FAERS Safety Report 8055507-5 (Version None)
Quarter: 2011Q4

REPORT INFORMATION
  Report Type: 
  Country: None (occurrence: None)
  Receive Date: 20111213
  Receipt Date: 20110928
  Transmission Date: 20120403
  Serious: Yes (Other)
  Sender: FDA-Public Use
  Company Number: 2011SP042571

PATIENT
  Age: 29 Year
  Sex: Female

DRUGS (5)
  1. SAPHRIS [Suspect]
     Indication: PSYCHOTIC DISORDER
     Dosage: 5 MG;BID;SL 10 MG;BID;SL
     Route: 060
     Dates: start: 20110111, end: 20110221
  2. SAPHRIS [Suspect]
     Indication: SCHIZOAFFECTIVE DISORDER
     Dosage: 5 MG;BID;SL 10 MG;BID;SL
     Route: 060
     Dates: start: 20110111, end: 20110221
  3. SAPHRIS [Suspect]
     Indication: PSYCHOTIC DISORDER
     Dosage: 5 MG;BID;SL 10 MG;BID;SL
     Route: 060
     Dates: start: 20110222, end: 20110722
  4. SAPHRIS [Suspect]
     Indication: SCHIZOAFFECTIVE DISORDER
     Dosage: 5 MG;BID;SL 10 MG;BID;SL
     Route: 060
     Dates: start: 20110222, end: 20110722
  5. TOPAMAX [Concomitant]

REACTIONS (3)
  - BLOOD UREA DECREASED [None]
  - HEPATIC ENZYME INCREASED [None]
  - MONOCYTE COUNT INCREASED [None]
